FAERS Safety Report 11038597 (Version 1)
Quarter: 2015Q2

REPORT INFORMATION
  Report Type: Spontaneous
  Country: DK (occurrence: None)
  Receive Date: 20150415
  Receipt Date: 20150415
  Transmission Date: 20150821
  Serious: Yes (Life-Threatening)
  Sender: FDA-Public Use
  Company Number: DE-TORRENT-00003662

PATIENT
  Age: 72 Year
  Sex: Female

DRUGS (2)
  1. VALSARTAN HEUMANN (INN:VALSARTAN) [Suspect]
     Active Substance: VALSARTAN
     Indication: BLOOD PRESSURE
     Route: 048
     Dates: start: 20150217, end: 20150222
  2. ATENOLOL. [Concomitant]
     Active Substance: ATENOLOL

REACTIONS (3)
  - Heart rate increased [None]
  - Palpitations [None]
  - Blood pressure increased [None]

NARRATIVE: CASE EVENT DATE: 20150222
